FAERS Safety Report 6187426-3 (Version None)
Quarter: 2009Q2

REPORT INFORMATION
  Report Type: 
  Country: None (occurrence: None)
  Receive Date: 20090508
  Receipt Date: 20090430
  Transmission Date: 20091009
  Serious: Yes (Hospitalization)
  Sender: FDA-Public Use
  Company Number: APP200900238

PATIENT
  Age: 51 Year
  Sex: Female
  Weight: 117 kg

DRUGS (10)
  1. LIDOCAINE HCL INJ [Suspect]
     Indication: BACK PAIN
     Dosage: EPIDURAL
     Route: 008
     Dates: start: 20081204
  2. DEPO-MEDROL [Suspect]
     Indication: BACK PAIN
     Dosage: EPIDURAL
     Route: 008
     Dates: start: 20081204
  3. SALINE [Suspect]
     Indication: BACK PAIN
     Dosage: EPIDURAL
     Route: 008
     Dates: start: 20081204
  4. POTASSIUM (POTASSIUM) [Concomitant]
  5. IMITREX [Concomitant]
  6. ACIPHEX [Concomitant]
  7. LASIX [Concomitant]
  8. ABILIFY [Concomitant]
  9. LOTENSIN LUNESTA (ESZOPICLONE) [Concomitant]
  10. DITROPAN XL [Concomitant]

REACTIONS (1)
  - PYREXIA [None]
